FAERS Safety Report 8294515-6 (Version None)
Quarter: 2012Q2

REPORT INFORMATION
  Report Type: 
  Country: None (occurrence: None)
  Receive Date: 20120418
  Receipt Date: 20120410
  Transmission Date: 20120825
  Serious: Yes (Hospitalization)
  Sender: FDA-Public Use
  Company Number: US-BAYER-2011-072070

PATIENT
  Age: 35 Year
  Sex: Female
  Weight: 45.351 kg

DRUGS (5)
  1. MEPERGAN [Concomitant]
     Dosage: UNK UNK, PRN
     Route: 048
     Dates: end: 20080727
  2. YAZ [Suspect]
     Indication: CONTRACEPTION
     Dosage: UNK
     Dates: start: 20070401, end: 20080701
  3. WELLBUTRIN [Concomitant]
     Indication: DEPRESSION
  4. WELLBUTRIN [Concomitant]
     Indication: ANXIETY
  5. LEVAQUIN [Concomitant]
     Indication: PNEUMONIA

REACTIONS (7)
  - PSYCHOLOGICAL TRAUMA [None]
  - PNEUMOTHORAX [None]
  - EMOTIONAL DISTRESS [None]
  - PULMONARY EMBOLISM [None]
  - INJURY [None]
  - PAIN [None]
  - ANXIETY [None]
